FAERS Safety Report 9225454 (Version 1)
Quarter: 2013Q2

REPORT INFORMATION
  Report Type: Spontaneous
  Country: IT (occurrence: IT)
  Receive Date: 20130411
  Receipt Date: 20130411
  Transmission Date: 20140414
  Serious: Yes (Hospitalization)
  Sender: FDA-Public Use
  Company Number: IT-ROCHE-1212192

PATIENT
  Age: 49 Year
  Sex: Male
  Weight: 63 kg

DRUGS (2)
  1. ROFERON-A [Suspect]
     Indication: RENAL CANCER
     Route: 058
     Dates: start: 20120412, end: 20121004
  2. AVASTIN [Concomitant]
     Route: 042
     Dates: start: 20120412, end: 20121004

REACTIONS (1)
  - Fasciitis [Recovered/Resolved]
